FAERS Safety Report 4862585-0 (Version None)
Quarter: 2005Q4

REPORT INFORMATION
  Report Type: 
  Country: None (occurrence: None)
  Receive Date: 20051221
  Receipt Date: 20051123
  Transmission Date: 20060501
  Serious: Yes (Other)
  Sender: FDA-Public Use
  Company Number: PHBS2005BR17360

PATIENT
  Age: 81 Year
  Sex: Female

DRUGS (7)
  1. EXELON [Suspect]
     Indication: DEMENTIA ALZHEIMER'S TYPE
     Dosage: 1.5 MG/D
     Route: 048
     Dates: start: 20050301
  2. EXELON [Suspect]
     Dosage: 3 MG/D
     Route: 048
  3. EXELON [Suspect]
     Dosage: 4.5 MG/D
     Route: 048
  4. EXELON [Suspect]
     Dosage: 6 MG, BID
     Route: 048
  5. SIMVASTATIN [Suspect]
     Dosage: 10 MG/D
  6. PROPRANOLOL [Suspect]
     Dosage: 40 MG/D
     Route: 048
  7. BUFERIN [Concomitant]

REACTIONS (5)
  - CONVULSION [None]
  - DISEASE PROGRESSION [None]
  - DRUG INTERACTION [None]
  - NAUSEA [None]
  - VOMITING [None]
